FAERS Safety Report 23217452 (Version 1)
Quarter: 2023Q4

REPORT INFORMATION
  Report Type: Spontaneous
  Country: BR (occurrence: BR)
  Receive Date: 20231122
  Receipt Date: 20231122
  Transmission Date: 20240109
  Serious: Yes (Hospitalization)
  Sender: FDA-Public Use
  Company Number: BR-ROCHE-2871295

PATIENT
  Age: 39 Year
  Sex: Female

DRUGS (9)
  1. CAPECITABINE [Suspect]
     Active Substance: CAPECITABINE
     Indication: Breast cancer
     Dosage: UNK
     Route: 048
  2. TRASTUZUMAB [Suspect]
     Active Substance: TRASTUZUMAB
     Indication: Breast cancer
     Dosage: DATE OF MOST RECENT DOSE OF HERCEPTIN PRIOR TO SAE ONSET: 29/APR/2020?DOSE OF LAST HERCEPTIN ADM...
     Route: 042
     Dates: start: 20200422, end: 20200715
  3. ADO-TRASTUZUMAB EMTANSINE [Suspect]
     Active Substance: ADO-TRASTUZUMAB EMTANSINE
     Indication: Breast cancer
     Dosage: 1 TIME IN 3 WEEKS?ROUTE OF ADMINISTRATION - INTRAVENOUS (NOT OTHERWISE SPECIFIED) (R2)
     Route: 042
  4. PERTUZUMAB [Suspect]
     Active Substance: PERTUZUMAB
     Indication: Breast cancer
     Dosage: 1 TIMES IN 3 WEEKS?ROUTE OF ADMINISTRATION - INTRAVENOUS (NOT OTHERWISE SPECIFIED) (R2)
     Route: 042
  5. ATEZOLIZUMAB [Suspect]
     Active Substance: ATEZOLIZUMAB
     Indication: Breast cancer
     Dosage: 1 TIMES IN 3 WEEKS?ROUTE OF ADMINISTRATION - INTRAVENOUS DRIP (R2)
     Route: 042
  6. BEVACIZUMAB [Suspect]
     Active Substance: BEVACIZUMAB
     Indication: Breast cancer
     Dosage: 1 TIME IN 3 WEEKS?ROUTE OF ADMINISTRATION - INTRAVENOUS (NOT OTHERWISE SPECIFIED) (R2)
     Route: 042
  7. PACLITAXEL [Suspect]
     Active Substance: PACLITAXEL
     Indication: Breast cancer
     Dosage: 1 TIME IN 1 WEEK?ROUTE OF ADMINISTRATION - INTRAVENOUS (NOT OTHERWISE SPECIFIED) (R2)
     Route: 042
     Dates: start: 20200422, end: 20200715
  8. DOXORUBICIN [Suspect]
     Active Substance: DOXORUBICIN
     Indication: Breast cancer
     Dosage: 1 TIME IN 2 WEEKS?ROUTE OF ADMINISTRATION - INTRAVENOUS (NOT OTHERWISE SPECIFIED) (R2)
     Route: 042
     Dates: start: 20200226, end: 20200408
  9. CYCLOPHOSPHAMIDE [Suspect]
     Active Substance: CYCLOPHOSPHAMIDE
     Indication: Breast cancer
     Dosage: 1 TIME IN 2 WEEKS?ROUTE OF ADMINISTRATION - INTRAVENOUS (NOT OTHERWISE SPECIFIED) (R2)
     Route: 042
     Dates: start: 20200226, end: 20200408

REACTIONS (3)
  - Febrile neutropenia [Recovered/Resolved]
  - Ejection fraction decreased [Recovered/Resolved]
  - Arthralgia [Recovered/Resolved]

NARRATIVE: CASE EVENT DATE: 20200506
